FAERS Safety Report 5147664-5 (Version None)
Quarter: 2006Q4

REPORT INFORMATION
  Report Type: 
  Country: None (occurrence: None)
  Receive Date: 20061110
  Receipt Date: 20061030
  Transmission Date: 20070319
  Serious: Yes (Other)
  Sender: FDA-Public Use
  Company Number: 2006AP05226

PATIENT
  Age: 57 Year
  Sex: Male

DRUGS (1)
  1. FOSCAVIR [Suspect]
     Indication: CYTOMEGALOVIRUS CHORIORETINITIS
     Route: 041
     Dates: start: 20061001

REACTIONS (1)
  - BRADYCARDIA [None]
